FAERS Safety Report 5020401-0 (Version None)
Quarter: 2006Q2

REPORT INFORMATION
  Report Type: 
  Country: None (occurrence: None)
  Receive Date: 20060602
  Receipt Date: 20060519
  Transmission Date: 20061013
  Serious: Yes (Life-Threatening, Hospitalization)
  Sender: FDA-Public Use
  Company Number: 2006RR-02372

PATIENT

DRUGS (3)
  1. AMOXICILLIN [Suspect]
  2. TENOXICAM (TENOXICAM) [Suspect]
  3. PROPACETAMOL [Concomitant]

REACTIONS (3)
  - POVERTY [None]
  - PYREXIA [None]
  - TOXIC EPIDERMAL NECROLYSIS [None]
